FAERS Safety Report 8595901 (Version 5)
Quarter: 2014Q2

REPORT INFORMATION
  Report Type: Spontaneous
  Country: US (occurrence: US)
  Receive Date: 20120605
  Receipt Date: 20140402
  Transmission Date: 20141212
  Serious: Yes (Hospitalization, Disabling)
  Sender: FDA-Public Use
  Company Number: US-ASTRAZENECA-2012SE35941

PATIENT
  Age: 43 Year
  Sex: Female
  Weight: 81.6 kg

DRUGS (20)
  1. NEXIUM [Suspect]
     Indication: GASTROOESOPHAGEAL REFLUX DISEASE
     Route: 048
     Dates: start: 2005
  2. NEXIUM [Suspect]
     Indication: DYSPEPSIA
     Route: 048
     Dates: start: 2005
  3. NEXIUM [Suspect]
     Indication: GASTROOESOPHAGEAL REFLUX DISEASE
     Route: 048
     Dates: start: 2005, end: 2013
  4. NEXIUM [Suspect]
     Indication: DYSPEPSIA
     Route: 048
     Dates: start: 2005, end: 2013
  5. NEXIUM [Suspect]
     Indication: GASTROOESOPHAGEAL REFLUX DISEASE
     Route: 048
     Dates: start: 200507, end: 2012
  6. NEXIUM [Suspect]
     Indication: DYSPEPSIA
     Route: 048
     Dates: start: 200507, end: 2012
  7. NEXIUM [Suspect]
     Indication: GASTROOESOPHAGEAL REFLUX DISEASE
     Route: 048
     Dates: start: 20080111
  8. NEXIUM [Suspect]
     Indication: DYSPEPSIA
     Route: 048
     Dates: start: 20080111
  9. NEXIUM [Suspect]
     Indication: GASTROOESOPHAGEAL REFLUX DISEASE
     Route: 048
     Dates: start: 20091217
  10. NEXIUM [Suspect]
     Indication: DYSPEPSIA
     Route: 048
     Dates: start: 20091217
  11. NEXIUM [Suspect]
     Indication: GASTROOESOPHAGEAL REFLUX DISEASE
     Route: 048
     Dates: start: 20120710
  12. NEXIUM [Suspect]
     Indication: DYSPEPSIA
     Route: 048
     Dates: start: 20120710
  13. WARFARIN/COUMADIN [Concomitant]
     Dates: start: 20091217
  14. BACTRIM [Concomitant]
  15. NEURONTIN [Concomitant]
     Dates: start: 20091217
  16. PREVACID [Concomitant]
  17. LORTAB [Concomitant]
     Dosage: 75MG/500MG EVERY 4-6 HRS
     Route: 048
     Dates: start: 20091217
  18. MACRODANTIN [Concomitant]
     Route: 048
     Dates: start: 20091217
  19. CYMBALTA [Concomitant]
     Route: 048
     Dates: start: 20091217
  20. TRAZODONE HCL [Concomitant]
     Route: 048
     Dates: start: 20091217

REACTIONS (10)
  - Paralysis [Unknown]
  - Accident [Unknown]
  - Multiple injuries [Unknown]
  - Osteoporosis [Unknown]
  - Multiple fractures [Unknown]
  - Ankle fracture [Unknown]
  - Bone disorder [Unknown]
  - Cataract [Unknown]
  - Tibia fracture [Unknown]
  - Depression [Unknown]
